APPROVED DRUG PRODUCT: DACARBAZINE
Active Ingredient: DACARBAZINE
Strength: 500MG/VIAL
Dosage Form/Route: INJECTABLE;INJECTION
Application: A075812 | Product #002 | TE Code: AP
Applicant: HIKMA PHARMACEUTICALS USA INC
Approved: Oct 31, 2002 | RLD: No | RS: No | Type: RX